FAERS Safety Report 6610347-6 (Version None)
Quarter: 2010Q1

REPORT INFORMATION
  Report Type: 
  Country: None (occurrence: None)
  Receive Date: 20100302
  Receipt Date: 20100222
  Transmission Date: 20100710
  Serious: Yes (Hospitalization)
  Sender: FDA-Public Use
  Company Number: US-GILEAD-2010-0027239

PATIENT
  Sex: Female

DRUGS (2)
  1. LETAIRIS [Suspect]
     Indication: PULMONARY ARTERIAL HYPERTENSION
     Route: 048
     Dates: start: 20081010
  2. PREDNISONE [Concomitant]

REACTIONS (10)
  - ABASIA [None]
  - ASTHENIA [None]
  - BLOOD GLUCOSE INCREASED [None]
  - DEHYDRATION [None]
  - DIZZINESS [None]
  - FLUID RETENTION [None]
  - INCREASED UPPER AIRWAY SECRETION [None]
  - LUNG DISORDER [None]
  - LUNG INFECTION [None]
  - LUNG NEOPLASM [None]
